FAERS Safety Report 13497897 (Version 1)
Quarter: 2017Q2

REPORT INFORMATION
  Report Type: Spontaneous
  Country: JP (occurrence: JP)
  Receive Date: 20170428
  Receipt Date: 20170428
  Transmission Date: 20170830
  Serious: Yes (Other)
  Sender: FDA-Public Use
  Company Number: JP-BRISTOL-MYERS SQUIBB COMPANY-BMS-2017-015471

PATIENT
  Age: 78 Year
  Sex: Female

DRUGS (1)
  1. ORENCIA [Suspect]
     Active Substance: ABATACEPT
     Indication: RHEUMATOID ARTHRITIS
     Dosage: UNK
     Route: 058
     Dates: start: 20170209

REACTIONS (10)
  - Injection site pain [Unknown]
  - Feeling abnormal [Unknown]
  - Initial insomnia [Unknown]
  - Injection site bruising [Unknown]
  - Haemorrhage subcutaneous [Recovered/Resolved]
  - Injection site haemorrhage [Unknown]
  - Headache [Unknown]
  - Blood pressure increased [Unknown]
  - Thirst [Unknown]
  - Injection site discolouration [Unknown]

NARRATIVE: CASE EVENT DATE: 20170209
